FAERS Safety Report 7025397-8 (Version None)
Quarter: 2010Q4

REPORT INFORMATION
  Report Type: 
  Country: None (occurrence: None)
  Receive Date: 20101001
  Receipt Date: 20100922
  Transmission Date: 20110411
  Serious: Yes (Other)
  Sender: FDA-Public Use
  Company Number: PHHY2010JP63263

PATIENT
  Age: 76 Year
  Sex: Male

DRUGS (5)
  1. TEGRETOL [Suspect]
     Indication: CONVULSION PROPHYLAXIS
     Dosage: 4 TABLETS DAILY (TWO TABLETS AFTER BREAKFAST AND TWO TABLETS AFTER THE EVENING MEAL)
     Route: 048
     Dates: start: 20100728, end: 20100903
  2. MAGMITT [Concomitant]
     Dosage: 990 MG, UNK
     Route: 048
  3. PREDONINE [Concomitant]
     Dosage: 3 TABLETS DAILY (ONE TABLET AFTER EACH MEAL)
     Route: 048
     Dates: start: 20100903, end: 20100923
  4. ALLEGRA [Concomitant]
     Dosage: 2 TABLETS DAILY (ONE TABLET AFTER BREAKFAST AND ONE TABLET AFTER THE EVENING MEAL)
     Route: 048
     Dates: start: 20100903, end: 20100923
  5. GASTER D [Concomitant]
     Dosage: 2 TABLETS DAILY (ONE TABLET AFTER BREAKFAST AND ONE TABLET AFTER THE EVENING MEAL)
     Route: 048
     Dates: start: 20100903, end: 20100923

REACTIONS (3)
  - PYREXIA [None]
  - RASH GENERALISED [None]
  - SWELLING FACE [None]
